FAERS Safety Report 6936274-2 (Version None)
Quarter: 2010Q3

REPORT INFORMATION
  Report Type: 
  Country: None (occurrence: None)
  Receive Date: 20100818
  Receipt Date: 20100802
  Transmission Date: 20110219
  Serious: Yes (Other)
  Sender: FDA-Public Use
  Company Number: ACO_00693_2010

PATIENT

DRUGS (1)
  1. AMPYRA [Suspect]
     Indication: MULTIPLE SCLEROSIS
     Dosage: 10 MG 1X, ORAL
     Route: 048
     Dates: start: 20100101, end: 20100101

REACTIONS (4)
  - CONFUSIONAL STATE [None]
  - CONVULSION [None]
  - METABOLIC DISORDER [None]
  - UNEVALUABLE EVENT [None]
